FAERS Safety Report 5166248-6 (Version None)
Quarter: 2006Q4

REPORT INFORMATION
  Report Type: 
  Country: None (occurrence: None)
  Receive Date: 20060830
  Receipt Date: 20060602
  Transmission Date: 20070319
  Serious: No
  Sender: FDA-Public Use
  Company Number: 226088

PATIENT
  Sex: Female

DRUGS (16)
  1. XOLAIR [Suspect]
     Indication: HYPERSENSITIVITY
     Dosage: 1/MONTH
     Dates: start: 20060301
  2. DICYCLOMINE (DICYCLOMINE HYDROCHLORIDE) [Concomitant]
  3. FLOVENT [Concomitant]
  4. ADVAIR DISKUS 100/50 [Concomitant]
  5. PREVACID [Concomitant]
  6. PHENOBARBITAL TAB [Concomitant]
  7. NAPROSYN [Concomitant]
  8. CLONAZEPAM [Concomitant]
  9. ZANAFLEX [Concomitant]
  10. ZYRTEC [Concomitant]
  11. CONCOMITANT DRUG (GENERIC COMPONENT(S) [Concomitant]
  12. LEXAPRO [Concomitant]
  13. ZOCOR [Concomitant]
  14. OXYCODONE HCL [Concomitant]
  15. NEUROTON (CITICOLINE) [Concomitant]
  16. KADIAN [Concomitant]

REACTIONS (1)
  - METRORRHAGIA [None]
